FAERS Safety Report 9088116 (Version 1)
Quarter: 2013Q1

REPORT INFORMATION
  Report Type: Spontaneous
  Country: FR (occurrence: FR)
  Receive Date: 20130218
  Receipt Date: 20130218
  Transmission Date: 20140127
  Serious: Yes (Hospitalization)
  Sender: FDA-Public Use
  Company Number: PHHY2013FR015594

PATIENT
  Sex: 0

DRUGS (1)
  1. AMOXICILLIN\CLAVULANIC ACID [Suspect]
     Indication: DERMO-HYPODERMITIS
     Dosage: 1 G, TID
     Route: 048
     Dates: start: 20110630

REACTIONS (7)
  - Eczema [Recovered/Resolved]
  - Pruritus [Recovered/Resolved]
  - Rash generalised [Recovered/Resolved]
  - Toxic skin eruption [None]
  - Dermatitis allergic [None]
  - Skin lesion [None]
  - Epidermal necrosis [None]
